FAERS Safety Report 4476133-0 (Version None)
Quarter: 2004Q3

REPORT INFORMATION
  Report Type: 
  Country: None (occurrence: None)
  Receive Date: 20040923
  Receipt Date: 20040621
  Transmission Date: 20050211
  Serious: No
  Sender: FDA-Public Use
  Company Number: USA040670693

PATIENT
  Age: 77 Year
  Sex: Female
  Weight: 49 kg

DRUGS (6)
  1. FORTEO [Suspect]
     Dosage: 20 UG DAY
     Dates: start: 20040617
  2. MOBIC [Concomitant]
  3. IBUPROFEN [Concomitant]
  4. ATIVAN [Concomitant]
  5. RESTORIL [Concomitant]
  6. CALCIUM [Concomitant]

REACTIONS (3)
  - BACK PAIN [None]
  - FATIGUE [None]
  - INJECTION SITE PAIN [None]
